FAERS Safety Report 5117474-3 (Version None)
Quarter: 2006Q3

REPORT INFORMATION
  Report Type: 
  Country: None (occurrence: None)
  Receive Date: 20060926
  Receipt Date: 20060906
  Transmission Date: 20061208
  Serious: No
  Sender: FDA-Public Use
  Company Number: US200609001440

PATIENT
  Age: 45 Year
  Sex: Female

DRUGS (4)
  1. CYMBALTA [Suspect]
     Indication: MAJOR DEPRESSION
     Dosage: 30 MG, UNK, UNK
  2. LIPITOR [Concomitant]
  3. ESTROGENS [Concomitant]
  4. VITAMINS NOS (VITAMINS NOS) [Concomitant]

REACTIONS (1)
  - HEPATIC ENZYME INCREASED [None]
